FAERS Safety Report 8921083 (Version 1)
Quarter: 2012Q4

REPORT INFORMATION
  Report Type: 
  Country: US (occurrence: US)
  Receive Date: 20121123
  Receipt Date: 20121123
  Transmission Date: 20130627
  Serious: Yes (Hospitalization)
  Sender: FDA-Public Use
  Company Number: US-AMGEN-USASP2012073724

PATIENT
  Age: 77 Year
  Sex: Male

DRUGS (4)
  1. ARANESP [Suspect]
     Indication: MYELODYSPLASTIC SYNDROME
     Dosage: UNK UNK, q2wk
     Dates: start: 2012
  2. METFORMIN [Concomitant]
  3. ATENOLOL [Concomitant]
  4. CELEXA                             /00582602/ [Concomitant]

REACTIONS (2)
  - Heart rate irregular [Unknown]
  - Hypotension [Unknown]
